FAERS Safety Report 6337134-0 (Version None)
Quarter: 2009Q3

REPORT INFORMATION
  Report Type: 
  Country: None (occurrence: None)
  Receive Date: 20090831
  Receipt Date: 20090814
  Transmission Date: 20100115
  Serious: Yes (Other)
  Sender: FDA-Public Use
  Company Number: 090824-0000932

PATIENT
  Age: 7 Year
  Sex: Female

DRUGS (3)
  1. SABRILEX (VIGABATRIN) [Suspect]
     Indication: EPILEPSY
     Dosage: 500 MG; QD; PO, 1200 MG; QD;, 1400 MG; QD;, 500 MG;
     Route: 048
     Dates: start: 19950803, end: 19990101
  2. SABRILEX (VIGABATRIN) [Suspect]
     Indication: EPILEPSY
     Dosage: 500 MG; QD; PO, 1200 MG; QD;, 1400 MG; QD;, 500 MG;
     Route: 048
     Dates: start: 20020101, end: 20020101
  3. SABRILEX (VIGABATRIN) [Suspect]
     Indication: EPILEPSY
     Dosage: 500 MG; QD; PO, 1200 MG; QD;, 1400 MG; QD;, 500 MG;
     Route: 048
     Dates: start: 20020101, end: 20021030

REACTIONS (1)
  - BLINDNESS [None]
